FAERS Safety Report 7199962-1 (Version None)
Quarter: 2010Q4

REPORT INFORMATION
  Report Type: 
  Country: None (occurrence: None)
  Receive Date: 20101214
  Receipt Date: 20101209
  Transmission Date: 20110411
  Serious: Yes (Death)
  Sender: FDA-Public Use
  Company Number: 2010SP063987

PATIENT
  Age: 68 Year
  Sex: Female

DRUGS (1)
  1. TEMOZOLOMIDE [Suspect]
     Indication: GLIOMA

REACTIONS (3)
  - BONE MARROW FAILURE [None]
  - HAEMATOTOXICITY [None]
  - SYSTEMIC MYCOSIS [None]
